FAERS Safety Report 4647295-7 (Version None)
Quarter: 2005Q2

REPORT INFORMATION
  Report Type: 
  Country: None (occurrence: None)
  Receive Date: 20050425
  Receipt Date: 20050425
  Transmission Date: 20051028
  Serious: Yes (Other)
  Sender: FDA-Public Use
  Company Number: None

PATIENT
  Age: 42 Year
  Sex: Female
  Weight: 64.4108 kg

DRUGS (4)
  1. TOPAMAX [Suspect]
     Indication: PAIN MANAGEMENT
     Dosage: 2 TABLETS A.M. AND P.M. ORAL
     Route: 048
     Dates: start: 20041001, end: 20050411
  2. TOPAMAX [Suspect]
     Indication: TREMOR
     Dosage: 2 TABLETS A.M. AND P.M. ORAL
     Route: 048
     Dates: start: 20041001, end: 20050411
  3. CLONAZEPAM [Suspect]
     Indication: ANXIETY
     Dosage: 1 TABLET EVERY 8 HOURS ORAL
     Route: 048
     Dates: start: 20040501, end: 20050411
  4. CLONAZEPAM [Suspect]
     Indication: TREMOR
     Dosage: 1 TABLET EVERY 8 HOURS ORAL
     Route: 048
     Dates: start: 20040501, end: 20050411

REACTIONS (1)
  - DRUG INTERACTION [None]
